FAERS Safety Report 8848744 (Version 1)
Quarter: 2012Q4

REPORT INFORMATION
  Report Type: 
  Country: CH (occurrence: CH)
  Receive Date: 20121018
  Receipt Date: 20121018
  Transmission Date: 20130627
  Serious: Yes (Hospitalization, Disabling)
  Sender: FDA-Public Use
  Company Number: CH-TEVA-363881ISR

PATIENT
  Age: 50 Year
  Sex: Female

DRUGS (5)
  1. FLUOROURACIL [Suspect]
     Indication: BREAST CANCER FEMALE
     Dosage: second cycle: 04-SEP-2012 without Fluorouracil
     Route: 041
     Dates: start: 20120810, end: 20120811
  2. EPIRUBICIN [Suspect]
     Indication: BREAST CANCER FEMALE
     Dosage: second cycle: 04-SEP-2012. The next cycle will be on 25-SEP-2012
     Route: 041
     Dates: start: 20120810
  3. CYCLOPHOSPHAMIDE [Suspect]
     Indication: BREAST CANCER FEMALE
     Dosage: second cycle: 04-SEP-2012, next cycle will be on 25-SEP-2012
     Route: 041
     Dates: start: 20120810
  4. PAROXETINE [Concomitant]
     Dosage: 20 Milligram Daily;
     Route: 048
  5. DAFALGAN [Concomitant]
     Dosage: drug product in reserve, start date is not known
     Route: 048

REACTIONS (3)
  - Cerebral infarction [Recovering/Resolving]
  - Hemiparesis [Recovering/Resolving]
  - Aphasia [Recovering/Resolving]
